FAERS Safety Report 6458572-1 (Version None)
Quarter: 2009Q4

REPORT INFORMATION
  Report Type: 
  Country: None (occurrence: None)
  Receive Date: 20091126
  Receipt Date: 20091104
  Transmission Date: 20100525
  Serious: Yes (Other)
  Sender: FDA-Public Use
  Company Number: CA-JNJFOC-20091101885

PATIENT
  Sex: Female

DRUGS (1)
  1. CAELYX [Suspect]
     Indication: BRAIN NEOPLASM
     Dosage: 4 CYCLES
     Route: 042

REACTIONS (4)
  - MALIGNANT NEOPLASM PROGRESSION [None]
  - OFF LABEL USE [None]
  - PAIN IN EXTREMITY [None]
  - PHLEBITIS [None]
